FAERS Safety Report 8100846-2 (Version None)
Quarter: 2012Q1

REPORT INFORMATION
  Report Type: 
  Country: None (occurrence: None)
  Receive Date: 20120129
  Receipt Date: 20111014
  Transmission Date: 20120608
  Serious: No
  Sender: FDA-Public Use
  Company Number: US-ABBOTT-11P-163-0865075-00

PATIENT
  Age: 72 Year
  Sex: Male

DRUGS (12)
  1. HUMIRA [Suspect]
     Indication: CROHN'S DISEASE
     Dates: start: 20110701
  2. SIMVASTATIN [Concomitant]
     Indication: PRODUCT USED FOR UNKNOWN INDICATION
     Dosage: DAILY
  3. CITALOPRAM HYDROBROMIDE [Concomitant]
     Indication: ANTIDEPRESSANT THERAPY
  4. TRAZODONE HCL [Concomitant]
     Indication: INSOMNIA
  5. UNKNOWN MEDICATION [Concomitant]
     Indication: CARDIAC DISORDER
  6. LISINOPRIL [Concomitant]
     Indication: BLOOD PRESSURE
     Dosage: DAILY
  7. METFORMIN HCL [Concomitant]
     Indication: BLOOD GLUCOSE ABNORMAL
  8. FINASTERIDE [Concomitant]
     Indication: PROSTATIC DISORDER
  9. FUROSEMIDE [Concomitant]
     Indication: DIURETIC THERAPY
     Dosage: DAILY
  10. TREAZOZIN [Concomitant]
     Indication: URINARY TRACT DISORDER
     Dosage: DAILY
  11. RANITIDINE [Concomitant]
     Indication: DYSPEPSIA
     Dosage: DAILY
  12. ASPIRIN [Concomitant]
     Indication: PRODUCT USED FOR UNKNOWN INDICATION

REACTIONS (1)
  - DRUG INEFFECTIVE [None]
